FAERS Safety Report 16981679 (Version 1)
Quarter: 2019Q4

REPORT INFORMATION
  Report Type: Spontaneous
  Country: US (occurrence: US)
  Receive Date: 20191101
  Receipt Date: 20191101
  Transmission Date: 20200122
  Serious: No
  Sender: FDA-Public Use
  Company Number: US-CIPLA LTD.-2019US01609

PATIENT

DRUGS (1)
  1. GABAPENTIN. [Suspect]
     Active Substance: GABAPENTIN
     Indication: NEURALGIA
     Dosage: 100 MILLIGRAM, QD (ONCE A DAY) FROM PAST FOUR YEARS
     Route: 048
     Dates: start: 201508, end: 20190314

REACTIONS (1)
  - Dyschezia [Recovered/Resolved]
